FAERS Safety Report 6988517-7 (Version None)
Quarter: 2010Q3

REPORT INFORMATION
  Report Type: 
  Country: None (occurrence: None)
  Receive Date: 20100916
  Receipt Date: 20100908
  Transmission Date: 20110219
  Serious: Yes (Other)
  Sender: FDA-Public Use
  Company Number: BR-PFIZER INC-2010113396

PATIENT
  Sex: Female
  Weight: 56 kg

DRUGS (5)
  1. LIPITOR [Suspect]
     Indication: BLOOD CHOLESTEROL
     Dosage: 10 MG, 1X/DAY, 1 TABLET
     Route: 048
     Dates: start: 20090519, end: 20100906
  2. LIPITOR [Suspect]
     Indication: INFARCTION
  3. ATENOLOL AND CHLORTHALIDONE [Concomitant]
     Indication: BLOOD PRESSURE INCREASED
     Dosage: UNK
     Dates: start: 20050101
  4. CLOPIDOGREL [Concomitant]
     Dosage: UNK
  5. CITALOPRAM [Concomitant]
     Indication: ANXIETY

REACTIONS (4)
  - MOBILITY DECREASED [None]
  - MUSCLE FATIGUE [None]
  - MYALGIA [None]
  - TREMOR [None]
